FAERS Safety Report 6697242-1 (Version None)
Quarter: 2010Q2

REPORT INFORMATION
  Report Type: 
  Country: None (occurrence: None)
  Receive Date: 20100426
  Receipt Date: 20100414
  Transmission Date: 20101027
  Serious: Yes (Disabling)
  Sender: FDA-Public Use
  Company Number: FR-PFIZER INC-2010014042

PATIENT
  Age: 53 Year
  Sex: Male
  Weight: 97 kg

DRUGS (4)
  1. BLINDED *NO SUBJECT DRUG [Suspect]
     Indication: RENAL CELL CARCINOMA
     Dosage: 37.5 MG PER DAY, SCHEDULE 4/2
     Route: 048
     Dates: start: 20081023, end: 20091022
  2. BLINDED *PLACEBO [Suspect]
     Indication: RENAL CELL CARCINOMA
     Dosage: 37.5 MG PER DAY, SCHEDULE 4/2
     Route: 048
     Dates: start: 20081023, end: 20091022
  3. BLINDED SUNITINIB MALATE [Suspect]
     Indication: RENAL CELL CARCINOMA
     Dosage: 37.5 MG PER DAY, SCHEDULE 4/2
     Route: 048
     Dates: start: 20081023, end: 20091022
  4. IXPRIM [Concomitant]
     Indication: PAIN

REACTIONS (1)
  - AXONAL NEUROPATHY [None]
